FAERS Safety Report 9601613 (Version 34)
Quarter: 2016Q1

REPORT INFORMATION
  Report Type: Report from Study
  Country: CA (occurrence: CA)
  Receive Date: 20131007
  Receipt Date: 20160330
  Transmission Date: 20160526
  Serious: Yes (Hospitalization, Other)
  Sender: FDA-Public Use
  Company Number: CA-ROCHE-1222115

PATIENT
  Age: 74 Year
  Sex: Female
  Weight: 89.4 kg

DRUGS (13)
  1. PREDNISONE. [Suspect]
     Active Substance: PREDNISONE
     Route: 065
  2. COVERSYL [Concomitant]
     Active Substance: PERINDOPRIL
  3. PREDNISONE. [Suspect]
     Active Substance: PREDNISONE
     Indication: PRODUCT USED FOR UNKNOWN INDICATION
     Route: 065
  4. GLICLAZIDE [Concomitant]
     Active Substance: GLICLAZIDE
  5. ACTEMRA [Suspect]
     Active Substance: TOCILIZUMAB
     Indication: RHEUMATOID ARTHRITIS
     Route: 042
     Dates: start: 20130116
  6. METHOTREXATE [Suspect]
     Active Substance: METHOTREXATE
     Indication: PRODUCT USED FOR UNKNOWN INDICATION
     Route: 065
  7. CRESTOR [Concomitant]
     Active Substance: ROSUVASTATIN CALCIUM
  8. JANUVIA [Concomitant]
     Active Substance: SITAGLIPTIN PHOSPHATE
  9. RABEPRAZOLE [Concomitant]
     Active Substance: RABEPRAZOLE
  10. SENOKOT [Suspect]
     Active Substance: SENNOSIDES
     Indication: PRODUCT USED FOR UNKNOWN INDICATION
     Route: 065
     Dates: start: 20130719
  11. ENBREL [Concomitant]
     Active Substance: ETANERCEPT
  12. ACTEMRA [Suspect]
     Active Substance: TOCILIZUMAB
     Route: 042
     Dates: start: 20140208
  13. CELEBREX [Concomitant]
     Active Substance: CELECOXIB

REACTIONS (45)
  - Cataract [Not Recovered/Not Resolved]
  - Nephrolithiasis [Unknown]
  - Acne [Not Recovered/Not Resolved]
  - Cough [Recovered/Resolved]
  - Infusion related reaction [Unknown]
  - Influenza [Recovered/Resolved]
  - Erythema [Not Recovered/Not Resolved]
  - Blood pressure increased [Unknown]
  - Blood pressure increased [Unknown]
  - Eye operation [Unknown]
  - Pneumonia [Recovered/Resolved]
  - Nasopharyngitis [Unknown]
  - Musculoskeletal stiffness [Not Recovered/Not Resolved]
  - Swelling [Not Recovered/Not Resolved]
  - Laceration [Unknown]
  - White blood cell count decreased [Not Recovered/Not Resolved]
  - Pain [Recovering/Resolving]
  - Laceration [Not Recovered/Not Resolved]
  - Skin ulcer [Not Recovered/Not Resolved]
  - Fall [Unknown]
  - Constipation [Recovered/Resolved]
  - Arthralgia [Unknown]
  - Nasopharyngitis [Recovered/Resolved]
  - Nasal congestion [Recovered/Resolved]
  - Hand fracture [Not Recovered/Not Resolved]
  - Influenza [Recovered/Resolved]
  - Dehydration [Recovering/Resolving]
  - Pain [Not Recovered/Not Resolved]
  - Cystitis [Not Recovered/Not Resolved]
  - White blood cell count decreased [Unknown]
  - Peripheral swelling [Not Recovered/Not Resolved]
  - Hypertension [Unknown]
  - Weight increased [Not Recovered/Not Resolved]
  - Back pain [Not Recovered/Not Resolved]
  - Fall [Unknown]
  - Blood iron decreased [Not Recovered/Not Resolved]
  - Heart rate decreased [Unknown]
  - Blood glucose decreased [Not Recovered/Not Resolved]
  - Joint swelling [Not Recovered/Not Resolved]
  - Pain of skin [Not Recovered/Not Resolved]
  - Pain in extremity [Not Recovered/Not Resolved]
  - Joint stiffness [Unknown]
  - Rheumatoid arthritis [Recovering/Resolving]
  - Drug ineffective [Unknown]
  - Fatigue [Unknown]

NARRATIVE: CASE EVENT DATE: 20130422
